FAERS Safety Report 7838890-2 (Version None)
Quarter: 2011Q4

REPORT INFORMATION
  Report Type: 
  Country: None (occurrence: None)
  Receive Date: 20111024
  Receipt Date: 20111010
  Transmission Date: 20120403
  Serious: Yes (Other)
  Sender: FDA-Public Use
  Company Number: US-US-EMD SERONO, INC.-7088631

PATIENT
  Sex: Female
  Weight: 32 kg

DRUGS (2)
  1. ZYRTEC [Concomitant]
     Indication: HYPERSENSITIVITY
     Route: 048
  2. SAIZEN [Suspect]
     Indication: GROWTH HORMONE DEFICIENCY
     Route: 058
     Dates: start: 20050613, end: 20071227

REACTIONS (2)
  - VISUAL IMPAIRMENT [None]
  - GLIOMA [None]
